FAERS Safety Report 6437015-8 (Version None)
Quarter: 2009Q4

REPORT INFORMATION
  Report Type: 
  Country: None (occurrence: None)
  Receive Date: 20091112
  Receipt Date: 20091101
  Transmission Date: 20100525
  Serious: Yes (Hospitalization)
  Sender: FDA-Public Use
  Company Number: IT-RANBAXY-2009RR-28976

PATIENT
  Sex: Male

DRUGS (1)
  1. RAMIPRIL [Suspect]

REACTIONS (2)
  - ARRHYTHMIA [None]
  - HYPOTENSION [None]
